FAERS Safety Report 6604504-2 (Version None)
Quarter: 2010Q1

REPORT INFORMATION
  Report Type: 
  Country: None (occurrence: None)
  Receive Date: 20100226
  Receipt Date: 20091102
  Transmission Date: 20100710
  Serious: No
  Sender: FDA-Public Use
  Company Number: A0815078A

PATIENT
  Sex: Female

DRUGS (8)
  1. LAMICTAL CD [Suspect]
     Dosage: 300MG PER DAY
     Route: 048
  2. LAMOTRIGINE [Suspect]
     Dates: start: 20070101, end: 20070101
  3. ZYPREXA [Concomitant]
  4. PROVIGIL [Concomitant]
  5. CLONOPIN [Concomitant]
  6. ASPIRIN [Concomitant]
  7. EFFEXOR XR [Concomitant]
  8. LIPITOR [Concomitant]

REACTIONS (4)
  - PAIN [None]
  - PHOTOSENSITIVITY REACTION [None]
  - RASH [None]
  - TENDERNESS [None]
